FAERS Safety Report 5337627-9 (Version None)
Quarter: 2007Q2

REPORT INFORMATION
  Report Type: 
  Country: None (occurrence: None)
  Receive Date: 20070309
  Receipt Date: 20061114
  Transmission Date: 20071010
  Serious: Yes (Death)
  Sender: FDA-Public Use
  Company Number: US200611003235

PATIENT
  Sex: Male

DRUGS (2)
  1. GEMZAR [Suspect]
     Indication: NON-SMALL CELL LUNG CANCER
     Dosage: 1000 MG/M2, INTRAVENOUS
     Route: 042
     Dates: end: 20060101
  2. CARBOPLATIN [Concomitant]

REACTIONS (3)
  - NEOPLASM MALIGNANT [None]
  - PYREXIA [None]
  - RASH [None]
